FAERS Safety Report 4541640-9 (Version None)
Quarter: 2004Q4

REPORT INFORMATION
  Report Type: 
  Country: None (occurrence: None)
  Receive Date: 20041227
  Receipt Date: 20041208
  Transmission Date: 20050328
  Serious: Yes (Hospitalization)
  Sender: FDA-Public Use
  Company Number: DSA_25492_2004

PATIENT
  Age: 89 Year
  Sex: Female

DRUGS (7)
  1. ENALAPRIL MALEATE [Suspect]
     Dosage: 1 TAB BID PO
     Route: 048
     Dates: start: 20040101
  2. HALOPERIDOL [Suspect]
     Dosage: DF, PO
     Route: 048
     Dates: start: 20040514, end: 20040721
  3. PIRIBEDIL [Suspect]
     Dosage: 100 MG QD DAY, PO
     Route: 048
     Dates: start: 20040614, end: 20040721
  4. ACETAMINOPHEN-CAFFEINE [Concomitant]
  5. ISOSORBIDE MONONITRATE [Concomitant]
  6. NICERGOLINE [Concomitant]
  7. PROPOXYPHENE HCL [Concomitant]

REACTIONS (5)
  - DERMATITIS BULLOUS [None]
  - PEMPHIGOID [None]
  - RASH ERYTHEMATOUS [None]
  - SKIN LESION [None]
  - THERAPY NON-RESPONDER [None]
